FAERS Safety Report 6256798-3 (Version None)
Quarter: 2009Q3

REPORT INFORMATION
  Report Type: 
  Country: None (occurrence: None)
  Receive Date: 20090706
  Receipt Date: 20090630
  Transmission Date: 20100115
  Serious: Yes (Death, Hospitalization)
  Sender: FDA-Public Use
  Company Number: JP-JNJFOC-20090701006

PATIENT
  Sex: Female

DRUGS (8)
  1. TOPINA [Suspect]
     Route: 048
  2. TOPINA [Suspect]
     Indication: EPILEPSY
     Route: 048
  3. VALPROATE SODIUM [Concomitant]
     Indication: EPILEPSY
     Dosage: 600 MG X 2
     Route: 048
  4. GASTER D [Concomitant]
     Indication: PROPHYLAXIS
     Route: 048
  5. RINDERON [Concomitant]
     Indication: BRAIN OEDEMA
     Route: 048
  6. CALBLOCK [Concomitant]
     Indication: HYPERTENSION
     Route: 048
  7. PRIMPERAN [Concomitant]
     Indication: NAUSEA
     Route: 048
  8. MAGMITT [Concomitant]
     Indication: CONSTIPATION
     Route: 048

REACTIONS (2)
  - HYPOALBUMINAEMIA [None]
  - MALIGNANT NEOPLASM PROGRESSION [None]
